FAERS Safety Report 4299174-5 (Version None)
Quarter: 2004Q1

REPORT INFORMATION
  Report Type: 
  Country: None (occurrence: None)
  Receive Date: 20040217
  Receipt Date: 20040130
  Transmission Date: 20041129
  Serious: Yes (Disabling, Other)
  Sender: FDA-Public Use
  Company Number: 2004006512

PATIENT
  Age: 33 Year
  Sex: Female
  Weight: 77.5651 kg

DRUGS (2)
  1. ZYRTEC [Suspect]
     Indication: HYPERSENSITIVITY
     Dosage: 20 MG (10, BID), ORAL
     Route: 048
  2. DIPHENHYDRAMINE HCL [Suspect]
     Indication: DERMATITIS CONTACT

REACTIONS (9)
  - BACK DISORDER [None]
  - DIFFICULTY IN WALKING [None]
  - DRUG HYPERSENSITIVITY [None]
  - EXPOSURE TO TOXIC AGENT [None]
  - HYPOAESTHESIA [None]
  - INSOMNIA [None]
  - PRURITUS [None]
  - ROAD TRAFFIC ACCIDENT [None]
  - SCAR [None]
